FAERS Safety Report 24000525 (Version 1)
Quarter: 2024Q2

REPORT INFORMATION
  Report Type: Spontaneous
  Country: FR (occurrence: FR)
  Receive Date: 20240621
  Receipt Date: 20240621
  Transmission Date: 20240716
  Serious: No
  Sender: FDA-Public Use
  Company Number: FR-PHARMAMAR-2024PM000169

PATIENT

DRUGS (1)
  1. ZEPZELCA [Suspect]
     Active Substance: LURBINECTEDIN
     Indication: Product used for unknown indication
     Dosage: 2.6 MILLIGRAM/SQ. METER

REACTIONS (2)
  - Haematotoxicity [Unknown]
  - Mucosal inflammation [Unknown]
